FAERS Safety Report 5101701-2 (Version None)
Quarter: 2006Q3

REPORT INFORMATION
  Report Type: 
  Country: None (occurrence: None)
  Receive Date: 20060731
  Receipt Date: 20060518
  Transmission Date: 20061208
  Serious: No
  Sender: FDA-Public Use
  Company Number: 2006PV014038

PATIENT
  Age: 58 Year
  Sex: Male
  Weight: 99.7913 kg

DRUGS (8)
  1. BYETTA [Suspect]
     Indication: DIABETES MELLITUS NON-INSULIN-DEPENDENT
     Dosage: 5 MCG BID SC
     Route: 058
     Dates: start: 20060301
  2. AMARYL [Concomitant]
  3. AMARYL [Concomitant]
  4. AVANDIA [Concomitant]
  5. LANTUS [Concomitant]
  6. GLUCOPHAGE [Concomitant]
  7. CLONIDINE [Concomitant]
  8. CYMBALTA [Concomitant]

REACTIONS (3)
  - BLOOD GLUCOSE INCREASED [None]
  - FATIGUE [None]
  - INSOMNIA [None]
